FAERS Safety Report 6687629-5 (Version None)
Quarter: 2010Q2

REPORT INFORMATION
  Report Type: 
  Country: None (occurrence: None)
  Receive Date: 20100415
  Receipt Date: 20100401
  Transmission Date: 20101027
  Serious: Yes (Life-Threatening, Hospitalization)
  Sender: FDA-Public Use
  Company Number: GB-DEXPHARM-20100383

PATIENT
  Sex: Female

DRUGS (4)
  1. DERMOL SOL [Suspect]
     Dosage: TOPICAL
     Route: 061
     Dates: start: 20100312, end: 20100316
  2. ALVERINE CITRATE [Concomitant]
  3. ATENOLOL [Concomitant]
  4. BENDROFLUMETHIAZIDE [Concomitant]

REACTIONS (3)
  - DRUG HYPERSENSITIVITY [None]
  - FALL [None]
  - SYNCOPE [None]
